FAERS Safety Report 9143619 (Version 1)
Quarter: 2013Q1

REPORT INFORMATION
  Report Type: Spontaneous
  Country: CA (occurrence: CA)
  Receive Date: 20130306
  Receipt Date: 20130306
  Transmission Date: 20140127
  Serious: Yes (Death, Other)
  Sender: FDA-Public Use
  Company Number: CA-NAPPMUNDI-CAN-2013-0003764

PATIENT
  Age: 21 Year
  Sex: Male

DRUGS (2)
  1. OXYCODONE [Suspect]
     Indication: PRODUCT USED FOR UNKNOWN INDICATION
     Dosage: UNK
     Route: 048
     Dates: start: 201301, end: 201301
  2. OXYCODONE [Suspect]
     Dosage: UNK
     Route: 045
     Dates: start: 201301, end: 201301

REACTIONS (2)
  - Unresponsive to stimuli [Fatal]
  - Drug abuse [Fatal]
